FAERS Safety Report 9799359 (Version 2)
Quarter: 2014Q1

REPORT INFORMATION
  Report Type: Spontaneous
  Country: FR (occurrence: FR)
  Receive Date: 20140106
  Receipt Date: 20140117
  Transmission Date: 20141002
  Serious: Yes (Death)
  Sender: FDA-Public Use
  Company Number: FR-NOVOPROD-396749

PATIENT
  Age: 60 Year
  Sex: Female
  Weight: 63 kg

DRUGS (6)
  1. NOVOSEVEN [Suspect]
     Indication: HAEMORRHAGE
     Dosage: 60 ?G/KG
     Route: 065
  2. NOVOSEVEN [Suspect]
     Indication: OFF LABEL USE
  3. RED BLOOD CELLS [Concomitant]
     Dosage: UNKNOWN
     Route: 065
  4. PLATELET CONCENTRATE [Concomitant]
     Dosage: UNKNOWN
     Route: 065
  5. PLASMA, FRESH FROZEN [Concomitant]
     Dosage: UNKNOWN
     Route: 065
  6. FIBRINOGEN [Concomitant]
     Dosage: ADMINISTERED WHEN FIBRINOGEN LEVEL {1 G/L
     Route: 065

REACTIONS (2)
  - Multi-organ failure [Fatal]
  - Off label use [Unknown]
